FAERS Safety Report 16717966 (Version 1)
Quarter: 2019Q3

REPORT INFORMATION
  Report Type: Spontaneous
  Country: IE (occurrence: IE)
  Receive Date: 20190819
  Receipt Date: 20190819
  Transmission Date: 20191005
  Serious: Yes (Other)
  Sender: FDA-Public Use
  Company Number: PHHY2019IE186367

PATIENT
  Sex: Male
  Weight: 3.1 kg

DRUGS (1)
  1. FOLIC ACID. [Suspect]
     Active Substance: FOLIC ACID
     Indication: FOETAL EXPOSURE DURING PREGNANCY
     Dosage: UNK
     Route: 064

REACTIONS (5)
  - Meningomyelocele [Recovered/Resolved]
  - Premature baby [Unknown]
  - Hydrocephalus [Recovered/Resolved]
  - Foetal exposure during pregnancy [Unknown]
  - Arnold-Chiari malformation [Recovered/Resolved]
